FAERS Safety Report 17836059 (Version 1)
Quarter: 2020Q2

REPORT INFORMATION
  Report Type: Spontaneous
  Country: CA (occurrence: CA)
  Receive Date: 20200528
  Receipt Date: 20200528
  Transmission Date: 20200714
  Serious: Yes (Other)
  Sender: FDA-Public Use
  Company Number: CA-SUN PHARMACEUTICAL INDUSTRIES LTD-2020R1-248389

PATIENT
  Sex: Male

DRUGS (1)
  1. RAN-METFORMIN [Suspect]
     Active Substance: METFORMIN HYDROCHLORIDE
     Indication: TYPE 2 DIABETES MELLITUS
     Dosage: UNK
     Route: 065
     Dates: start: 2017, end: 20200226

REACTIONS (5)
  - Emotional distress [Unknown]
  - Organ failure [Unknown]
  - Bladder cancer [Unknown]
  - Colon cancer [Unknown]
  - Product quality issue [Unknown]
